FAERS Safety Report 7658978-9 (Version None)
Quarter: 2011Q3

REPORT INFORMATION
  Report Type: 
  Country: None (occurrence: None)
  Receive Date: 20110805
  Receipt Date: 20110722
  Transmission Date: 20111222
  Serious: Yes (Death)
  Sender: FDA-Public Use
  Company Number: US-ELI_LILLY_AND_COMPANY-US200911006294

PATIENT
  Sex: Female

DRUGS (1)
  1. FORTEO [Suspect]
     Indication: OSTEOPOROSIS
     Dosage: 20 UG, DAILY (1/D)
     Route: 058
     Dates: start: 20091001, end: 20091108

REACTIONS (5)
  - HEADACHE [None]
  - MOBILITY DECREASED [None]
  - DRUG DOSE OMISSION [None]
  - DEATH [None]
  - MUSCLE SPASMS [None]
